FAERS Safety Report 19810933 (Version 1)
Quarter: 2021Q3

REPORT INFORMATION
  Report Type: Spontaneous
  Country: IN (occurrence: IN)
  Receive Date: 20210909
  Receipt Date: 20210909
  Transmission Date: 20211014
  Serious: No
  Sender: FDA-Public Use
  Company Number: IN-LUPIN LIMITED-2020-11168

PATIENT
  Sex: Male

DRUGS (1)
  1. SOFTOLAX POWD. SAUNF SF 100 G [Suspect]
     Active Substance: PSYLLIUM HUSK\SENNA LEAF
     Indication: PRODUCT USED FOR UNKNOWN INDICATION
     Dosage: UNK
     Route: 065

REACTIONS (4)
  - Product colour issue [Unknown]
  - Product quality issue [Unknown]
  - Drug ineffective [Unknown]
  - No adverse event [Unknown]
